FAERS Safety Report 4648673-2 (Version None)
Quarter: 2005Q2

REPORT INFORMATION
  Report Type: 
  Country: None (occurrence: None)
  Receive Date: 20050427
  Receipt Date: 20050412
  Transmission Date: 20051028
  Serious: Yes (Hospitalization)
  Sender: FDA-Public Use
  Company Number: CA_041007331

PATIENT
  Age: 70 Year
  Sex: Female
  Weight: 91 kg

DRUGS (2)
  1. FORTEO [Suspect]
     Indication: OSTEOPOROSIS
     Dosage: 20 UG/1 DAY
     Dates: start: 20040926, end: 20050407
  2. LOSEC (OMEPRAZOLE SODIUM) [Concomitant]

REACTIONS (10)
  - ASTHENIA [None]
  - BALANCE DISORDER [None]
  - BLOOD GLUCOSE INCREASED [None]
  - CONTUSION [None]
  - DRUG HYPERSENSITIVITY [None]
  - EXCORIATION [None]
  - FALL [None]
  - INFLAMMATION [None]
  - MYOCARDIAL INFARCTION [None]
  - PAIN IN EXTREMITY [None]
